FAERS Safety Report 5079571-0 (Version None)
Quarter: 2006Q3

REPORT INFORMATION
  Report Type: 
  Country: None (occurrence: None)
  Receive Date: 20060811
  Receipt Date: 20060811
  Transmission Date: 20061208
  Serious: Yes (Hospitalization)
  Sender: FDA-Public Use
  Company Number: None

PATIENT
  Sex: Male
  Weight: 47.2 kg

DRUGS (9)
  1. FLUDARABINE [Suspect]
     Indication: STEM CELL TRANSPLANT
     Dosage: 48 MG  DAILY   IV DRIP
     Route: 041
     Dates: start: 20060725, end: 20060729
  2. CAMPATH [Suspect]
     Indication: STEM CELL TRANSPLANT
     Dosage: 20 MG   DAILY   IV DRIP
     Route: 041
     Dates: start: 20060725, end: 20060729
  3. BUSULFAN [Suspect]
     Dosage: 246 TWO DOSES   310 TWO DOSES   DAILY   IV DRIP
     Route: 041
     Dates: start: 20060724, end: 20060729
  4. PROGRAF [Concomitant]
  5. PREVACID [Concomitant]
  6. ZOFRAN [Concomitant]
  7. AVELOX [Concomitant]
  8. VOIROCNAZOLES [Concomitant]
  9. IMIPENEN [Concomitant]

REACTIONS (8)
  - BACTERIAL INFECTION [None]
  - BLOOD PRESSURE DECREASED [None]
  - BODY TEMPERATURE INCREASED [None]
  - CHRONIC OBSTRUCTIVE PULMONARY DISEASE [None]
  - HYPOVENTILATION [None]
  - LOSS OF CONSCIOUSNESS [None]
  - LUNG HYPERINFLATION [None]
  - STAPHYLOCOCCAL INFECTION [None]
